FAERS Safety Report 8811796 (Version 1)
Quarter: 2012Q4

REPORT INFORMATION
  Report Type: 
  Country: US (occurrence: US)
  Receive Date: 20120927
  Receipt Date: 20120927
  Transmission Date: 20130627
  Serious: Yes (Death, Hospitalization)
  Sender: FDA-Public Use
  Company Number: US-GLAXOSMITHKLINE-A0787541A

PATIENT
  Age: 60 Year
  Sex: Male
  Weight: 175 kg

DRUGS (1)
  1. AVANDIA [Suspect]
     Indication: DIABETES MELLITUS
     Route: 048
     Dates: start: 1999, end: 2007

REACTIONS (10)
  - Death [Fatal]
  - Cardiac failure congestive [Unknown]
  - Atrial fibrillation [Unknown]
  - Cardiomyopathy [Unknown]
  - Diabetic neuropathy [Unknown]
  - Hepatic steatosis [Unknown]
  - Weight increased [Unknown]
  - Dizziness [Unknown]
  - Hypertension [Unknown]
  - Sleep apnoea syndrome [Unknown]
